FAERS Safety Report 6164729-X (Version None)
Quarter: 2009Q2

REPORT INFORMATION
  Report Type: 
  Country: None (occurrence: None)
  Receive Date: 20090423
  Receipt Date: 20090421
  Transmission Date: 20091009
  Serious: Yes (Other)
  Sender: FDA-Public Use
  Company Number: JP-BAYER-200911209BYL

PATIENT
  Age: 76 Year
  Sex: Female
  Weight: 62 kg

DRUGS (15)
  1. GLUCOBAY [Suspect]
     Indication: DIABETES MELLITUS
     Dosage: TOTAL DAILY DOSE: 150 MG  UNIT DOSE: 50 MG
     Route: 048
     Dates: start: 20081127, end: 20081213
  2. ADALAT CC [Suspect]
     Indication: HYPERTENSION
     Dosage: TOTAL DAILY DOSE: 40 MG  UNIT DOSE: 20 MG
     Route: 048
     Dates: start: 20081201, end: 20081213
  3. OLMETEC [Concomitant]
     Indication: HYPERTENSION
     Route: 048
     Dates: end: 20081201
  4. PERSANTINE [Concomitant]
     Route: 048
  5. BERIZYM [Concomitant]
     Route: 048
  6. KOLANTYL [Concomitant]
     Route: 048
  7. LIPITOR [Concomitant]
     Route: 048
  8. SANCOBA [Concomitant]
     Route: 031
  9. NIFLAN [Concomitant]
     Route: 031
  10. ANTEBATE [Concomitant]
     Route: 061
  11. ZEFNART [Concomitant]
     Route: 061
  12. ASTAT [Concomitant]
     Route: 061
  13. HIRUDOID [Concomitant]
     Route: 061
  14. FULRUBAN [Concomitant]
     Route: 062
  15. CONIEL [Concomitant]
     Indication: HYPERTENSION
     Route: 048
     Dates: start: 20081213

REACTIONS (1)
  - PANCYTOPENIA [None]
